FAERS Safety Report 12901094 (Version 2)
Quarter: 2016Q4

REPORT INFORMATION
  Report Type: Spontaneous
  Country: IL (occurrence: IL)
  Receive Date: 20161101
  Receipt Date: 20161103
  Transmission Date: 20170207
  Serious: Yes (Life-Threatening, Hospitalization, Other)
  Sender: FDA-Public Use
  Company Number: IL-SEATTLE GENETICS-2016SGN01689

PATIENT
  Age: 58 Year
  Sex: Female

DRUGS (1)
  1. ADCETRIS [Suspect]
     Active Substance: BRENTUXIMAB VEDOTIN
     Indication: HODGKIN^S DISEASE
     Dosage: 50 MG, UNK
     Route: 042

REACTIONS (2)
  - Infusion related reaction [Recovered/Resolved]
  - Anaphylactic shock [Recovered/Resolved]
